FAERS Safety Report 22220612 (Version 1)
Quarter: 2023Q2

REPORT INFORMATION
  Report Type: Spontaneous
  Country: US (occurrence: US)
  Receive Date: 20230417
  Receipt Date: 20230417
  Transmission Date: 20230722
  Serious: No
  Sender: FDA-Public Use
  Company Number: US-drreddys-SPO/USA/23/0162484

PATIENT
  Age: 29 Year

DRUGS (2)
  1. ZENATANE [Suspect]
     Active Substance: ISOTRETINOIN
     Indication: Acne
     Dates: start: 20210719
  2. TRAMETINIB [Concomitant]
     Active Substance: TRAMETINIB
     Indication: Cervix carcinoma

REACTIONS (7)
  - Localised infection [Unknown]
  - Xerosis [Unknown]
  - Stomatitis [Unknown]
  - Dermatitis acneiform [Unknown]
  - Staphylococcal infection [Unknown]
  - Dry skin [Unknown]
  - Skin infection [Unknown]

NARRATIVE: CASE EVENT DATE: 20230215
